FAERS Safety Report 6429768-X (Version None)
Quarter: 2009Q4

REPORT INFORMATION
  Report Type: 
  Country: None (occurrence: None)
  Receive Date: 20091106
  Receipt Date: 20091029
  Transmission Date: 20100525
  Serious: Yes (Other)
  Sender: FDA-Public Use
  Company Number: US-ELI_LILLY_AND_COMPANY-US200910005804

PATIENT
  Sex: Female
  Weight: 52.7 kg

DRUGS (6)
  1. PEMETREXED [Suspect]
     Indication: NON-SMALL CELL LUNG CANCER
     Dosage: 750 MG, OTHER
     Route: 042
     Dates: start: 20090908, end: 20090929
  2. CETUXIMAB [Suspect]
     Indication: NON-SMALL CELL LUNG CANCER
     Dosage: UNK, UNK
     Route: 042
     Dates: start: 20090908
  3. CARBOPLATIN [Suspect]
     Indication: NON-SMALL CELL LUNG CANCER
     Dosage: 475 MG, OTHER
     Route: 042
     Dates: start: 20090908, end: 20090929
  4. METOPROLOL [Concomitant]
  5. DURAGESIC-100 [Concomitant]
  6. FOLIC ACID [Concomitant]

REACTIONS (1)
  - PULMONARY EMBOLISM [None]
